FAERS Safety Report 5301110-7 (Version None)
Quarter: 2007Q2

REPORT INFORMATION
  Report Type: 
  Country: None (occurrence: None)
  Receive Date: 20070418
  Receipt Date: 20070412
  Transmission Date: 20071010
  Serious: Yes (Life-Threatening)
  Sender: FDA-Public Use
  Company Number: IT-BOEHRINGER INGELHEIM PHARMACEUTICALS, INC.-2007-IT-00166IT

PATIENT
  Sex: Female
  Weight: 70 kg

DRUGS (4)
  1. MIRAPEXIN [Suspect]
     Indication: PARKINSON'S DISEASE
     Route: 048
     Dates: start: 20050727, end: 20070412
  2. LEVODOPA-BENSERAZIDE [Concomitant]
     Indication: PARKINSON'S DISEASE
     Route: 048
     Dates: start: 20040422
  3. OMEPRAZOLE [Concomitant]
     Indication: HIATUS HERNIA
     Route: 048
     Dates: start: 20040101
  4. FROVATRIPTAN [Concomitant]
     Indication: MIGRAINE
     Route: 048
     Dates: start: 20060101

REACTIONS (2)
  - ROAD TRAFFIC ACCIDENT [None]
  - SUDDEN ONSET OF SLEEP [None]
